FAERS Safety Report 8524483-0 (Version None)
Quarter: 2012Q3

REPORT INFORMATION
  Report Type: 
  Country: None (occurrence: None)
  Receive Date: 20120720
  Receipt Date: 20120330
  Transmission Date: 20120928
  Serious: No
  Sender: FDA-Public Use
  Company Number: US-MYLANLABS-2012S1007163

PATIENT
  Sex: Female

DRUGS (2)
  1. VALIUM [Concomitant]
     Indication: ANXIETY
  2. BUSPIRONE HCL [Suspect]
     Indication: ANXIETY
     Dosage: TAKE 2 TABLETS DAILY
     Route: 048
     Dates: start: 20111201

REACTIONS (1)
  - DIZZINESS [None]
